FAERS Safety Report 23014271 (Version 2)
Quarter: 2023Q4

REPORT INFORMATION
  Report Type: Report from Study
  Country: DE (occurrence: DE)
  Receive Date: 20231002
  Receipt Date: 20231102
  Transmission Date: 20240109
  Serious: Yes (Other)
  Sender: FDA-Public Use
  Company Number: DE-002147023-NVSC2023DE066430

PATIENT
  Age: 6 Year
  Sex: Male
  Weight: 21.7 kg

DRUGS (4)
  1. ILARIS [Suspect]
     Active Substance: CANAKINUMAB
     Indication: Familial mediterranean fever
     Dosage: 80 MG
     Route: 058
     Dates: start: 20200826
  2. ILARIS [Suspect]
     Active Substance: CANAKINUMAB
     Dosage: 80 MG
     Route: 058
     Dates: start: 20221216
  3. ILARIS [Suspect]
     Active Substance: CANAKINUMAB
     Dosage: 85 MG, QMO
     Route: 058
  4. COLCHICINE [Suspect]
     Active Substance: COLCHICINE
     Indication: Product used for unknown indication
     Dosage: 0.5 MG, TID
     Route: 048
     Dates: start: 20220920

REACTIONS (1)
  - Leukopenia [Not Recovered/Not Resolved]

NARRATIVE: CASE EVENT DATE: 20230110
